FAERS Safety Report 21421394 (Version 2)
Quarter: 2022Q4

REPORT INFORMATION
  Report Type: Other
  Country: JP (occurrence: JP)
  Receive Date: 20221007
  Receipt Date: 20221019
  Transmission Date: 20230112
  Serious: Yes (Hospitalization, Other)
  Sender: FDA-Public Use
  Company Number: JP-CHUGAI-2022002811

PATIENT
  Age: 77 Year
  Sex: Male
  Weight: 55.4 kg

DRUGS (5)
  1. ATEZOLIZUMAB [Suspect]
     Active Substance: ATEZOLIZUMAB
     Indication: Small cell lung cancer extensive stage
     Dosage: 1200 MILLIGRAM
     Route: 041
     Dates: start: 20201207
  2. CARBOPLATIN [Suspect]
     Active Substance: CARBOPLATIN
     Indication: Small cell lung cancer extensive stage
     Dosage: 290 MILLIGRAM
     Route: 041
     Dates: start: 20201207
  3. CARBOPLATIN [Suspect]
     Active Substance: CARBOPLATIN
     Dosage: 290 MILLIGRAM, MOST RECENT DOSE 08/MAR/2021
     Route: 041
  4. ETOPOSIDE [Suspect]
     Active Substance: ETOPOSIDE
     Indication: Small cell lung cancer extensive stage
     Dosage: 165 MILLIGRAM
     Route: 065
     Dates: start: 20201207
  5. ETOPOSIDE [Suspect]
     Active Substance: ETOPOSIDE
     Dosage: 132 MILLIGRAM, MOST RECENT DOSE 10/MAR/2021
     Route: 065

REACTIONS (2)
  - Pneumonia [Recovering/Resolving]
  - Pneumonia [Recovered/Resolved]

NARRATIVE: CASE EVENT DATE: 20210201
